FAERS Safety Report 5689872-0 (Version None)
Quarter: 2008Q1

REPORT INFORMATION
  Report Type: 
  Country: None (occurrence: None)
  Receive Date: 20080331
  Receipt Date: 20080331
  Transmission Date: 20080703
  Serious: Yes (Life-Threatening)
  Sender: FDA-Public Use
  Company Number: None

PATIENT
  Age: 69 Year
  Sex: Female
  Weight: 51.2565 kg

DRUGS (3)
  1. BUPROPION 300MG XL [Suspect]
     Indication: DEPRESSION
     Dosage: 300MG DAILY PO
     Route: 048
     Dates: start: 20080227, end: 20080319
  2. RISPERIDONE [Suspect]
     Indication: DEPRESSION
     Dosage: 1.5MG NIGHTLY PO
     Route: 048
     Dates: start: 20080217, end: 20080319
  3. LINEZOLID [Suspect]
     Dosage: 600MG PO BID X2D
     Route: 048

REACTIONS (3)
  - SEROTONIN SYNDROME [None]
  - SUICIDE ATTEMPT [None]
  - THERMAL BURN [None]
